FAERS Safety Report 8445282-4 (Version None)
Quarter: 2012Q2

REPORT INFORMATION
  Report Type: 
  Country: None (occurrence: None)
  Receive Date: 20120611
  Receipt Date: 20120531
  Transmission Date: 20120825
  Serious: Yes (Other)
  Sender: FDA-Public Use
  Company Number: 2012SP025803

PATIENT
  Age: 65 Year
  Sex: Female

DRUGS (8)
  1. HYDROXYZINE [Suspect]
     Indication: PRODUCT USED FOR UNKNOWN INDICATION
  2. IRON (IRON) [Suspect]
     Indication: PRODUCT USED FOR UNKNOWN INDICATION
  3. DESLORATADINE [Suspect]
     Indication: PRODUCT USED FOR UNKNOWN INDICATION
  4. FLUCONAZOLE [Suspect]
     Indication: PRODUCT USED FOR UNKNOWN INDICATION
  5. AMIKIN [Suspect]
     Indication: PRODUCT USED FOR UNKNOWN INDICATION
  6. BETA LACTAM (OTHER BETA-LACTAM ANTIBACTERIALS) [Suspect]
     Indication: PRODUCT USED FOR UNKNOWN INDICATION
  7. IODINE (IODINE) [Suspect]
     Indication: PRODUCT USED FOR UNKNOWN INDICATION
  8. VANCOMYCIN [Suspect]
     Indication: PRODUCT USED FOR UNKNOWN INDICATION

REACTIONS (2)
  - SKIN TEST POSITIVE [None]
  - DRUG RASH WITH EOSINOPHILIA AND SYSTEMIC SYMPTOMS [None]
